FAERS Safety Report 22948639 (Version 3)
Quarter: 2024Q1

REPORT INFORMATION
  Report Type: Spontaneous
  Country: AU (occurrence: AU)
  Receive Date: 20230915
  Receipt Date: 20240119
  Transmission Date: 20240410
  Serious: Yes (Life-Threatening, Hospitalization, Other)
  Sender: FDA-Public Use
  Company Number: AU-UCBSA-2023045510

PATIENT
  Age: 51 Year
  Sex: Female

DRUGS (6)
  1. BRIVARACETAM [Suspect]
     Active Substance: BRIVARACETAM
     Indication: Epilepsy
     Dosage: 100 MILLIGRAM, UNK
     Dates: start: 20210101, end: 20230829
  2. BRIVARACETAM [Suspect]
     Active Substance: BRIVARACETAM
     Indication: Anxiety
  3. REBOXETINE [Suspect]
     Active Substance: REBOXETINE
     Indication: Major depression
     Dosage: 12 MILLIGRAM, UNK
     Dates: start: 19990501
  4. BISOPROLOL [Concomitant]
     Active Substance: BISOPROLOL\BISOPROLOL FUMARATE
     Indication: Cardiomyopathy
     Dosage: 10 MILLIGRAM, UNK
     Dates: start: 20210401
  5. IVABRADINE [IVABRADINE OXALATE] [Concomitant]
     Indication: Cardiomyopathy
     Dosage: 37.5 MILLIGRAM, UNK
     Dates: start: 20210401
  6. SACUBITRIL\VALSARTAN [Concomitant]
     Active Substance: SACUBITRIL\VALSARTAN
     Indication: Cardiomyopathy
     Dosage: 9/103 MILLIGRAM, UNK
     Dates: start: 20210401

REACTIONS (5)
  - Seizure [Not Recovered/Not Resolved]
  - Brain herniation [Not Recovered/Not Resolved]
  - Arachnoid cyst [Not Recovered/Not Resolved]
  - Delusion [Not Recovered/Not Resolved]
  - Product use in unapproved indication [Unknown]

NARRATIVE: CASE EVENT DATE: 20230201
